FAERS Safety Report 7724702-4 (Version None)
Quarter: 2011Q3

REPORT INFORMATION
  Report Type: 
  Country: None (occurrence: None)
  Receive Date: 20110901
  Receipt Date: 20110825
  Transmission Date: 20111222
  Serious: Yes (Death, Other)
  Sender: FDA-Public Use
  Company Number: US-PFIZER INC-2011199254

PATIENT
  Age: 6 Month
  Sex: Female

DRUGS (2)
  1. LINEZOLID [Suspect]
     Indication: ENTEROCOCCAL INFECTION
     Dosage: 47 MG, 3X/DAY
  2. LINEZOLID [Suspect]
     Indication: SEPSIS

REACTIONS (1)
  - LACTIC ACIDOSIS [None]
